FAERS Safety Report 13681078 (Version 2)
Quarter: 2017Q4

REPORT INFORMATION
  Report Type: Spontaneous
  Country: US (occurrence: US)
  Receive Date: 20170623
  Receipt Date: 20171024
  Transmission Date: 20180320
  Serious: Yes (Other)
  Sender: FDA-Public Use
  Company Number: US-TEVA-761471ACC

PATIENT
  Sex: Female
  Weight: 56.3 kg

DRUGS (2)
  1. PRENATAL [Concomitant]
     Active Substance: VITAMINS
  2. PARAGARD T 380A [Suspect]
     Active Substance: COPPER
     Dates: start: 20170104, end: 20170303

REACTIONS (4)
  - Pregnancy on contraceptive [Unknown]
  - Breech presentation [Unknown]
  - Exposure during pregnancy [Unknown]
  - Live birth [Unknown]
